FAERS Safety Report 12510230 (Version 5)
Quarter: 2017Q1

REPORT INFORMATION
  Report Type: Spontaneous
  Country: US (occurrence: US)
  Receive Date: 20160629
  Receipt Date: 20170214
  Transmission Date: 20170428
  Serious: No
  Sender: FDA-Public Use
  Company Number: US-ACTELION-A-US2016-138146

PATIENT
  Age: 77 Year
  Sex: Female

DRUGS (10)
  1. AMBRISENTAN [Suspect]
     Active Substance: AMBRISENTAN
     Indication: PULMONARY ARTERIAL HYPERTENSION
     Dosage: 10 MG, QD
     Route: 048
     Dates: start: 20121129
  2. ALDACTONE [Concomitant]
     Active Substance: SPIRONOLACTONE
  3. UPTRAVI [Suspect]
     Active Substance: SELEXIPAG
     Indication: PULMONARY ARTERIAL HYPERTENSION
     Dosage: UNK
     Route: 048
     Dates: end: 201607
  4. BACTRIM [Concomitant]
     Active Substance: SULFAMETHOXAZOLE\TRIMETHOPRIM
  5. BUDESONIDE. [Concomitant]
     Active Substance: BUDESONIDE
  6. ACTHAR [Concomitant]
     Active Substance: CORTICOTROPIN
  7. ATROVENT [Concomitant]
     Active Substance: IPRATROPIUM BROMIDE
  8. ADCIRCA [Concomitant]
     Active Substance: TADALAFIL
  9. UPTRAVI [Suspect]
     Active Substance: SELEXIPAG
     Dosage: 400 MCG, UNK
     Route: 048
  10. LOSARTAN. [Concomitant]
     Active Substance: LOSARTAN

REACTIONS (18)
  - Arthralgia [Unknown]
  - Pain in extremity [Unknown]
  - Anaemia [Unknown]
  - Feeling abnormal [Unknown]
  - Decreased appetite [Unknown]
  - Anxiety [Unknown]
  - Heart rate increased [Unknown]
  - Gastrointestinal disorder [Unknown]
  - Diarrhoea [Unknown]
  - Sleep disorder [Unknown]
  - Fatigue [Unknown]
  - Lung disorder [Unknown]
  - Headache [Unknown]
  - Asthenia [Unknown]
  - Condition aggravated [Unknown]
  - Upper respiratory tract infection [Unknown]
  - Pain [Unknown]
  - Weight decreased [Unknown]
